FAERS Safety Report 26111298 (Version 1)
Quarter: 2025Q4

REPORT INFORMATION
  Report Type: Spontaneous
  Country: US (occurrence: US)
  Receive Date: 20251202
  Receipt Date: 20251202
  Transmission Date: 20260117
  Serious: Yes (Life-Threatening, Hospitalization, Other)
  Sender: UNICHEM
  Company Number: US-UNICHEM LABORATORIES LIMITED-UNI-2025-US-003965

PATIENT

DRUGS (1)
  1. BACLOFEN [Suspect]
     Active Substance: BACLOFEN
     Indication: Muscle spasticity
     Dosage: UNK
     Route: 037

REACTIONS (8)
  - Pneumonia [Unknown]
  - Accidental overdose [Unknown]
  - Toxicity to various agents [Unknown]
  - Coma [Unknown]
  - Acute respiratory failure [Unknown]
  - Status epilepticus [Unknown]
  - Deep vein thrombosis [Unknown]
  - Hyperthermia [Unknown]
